FAERS Safety Report 11568678 (Version 3)
Quarter: 2017Q1

REPORT INFORMATION
  Report Type: Report from Study
  Country: DE (occurrence: DE)
  Receive Date: 20150929
  Receipt Date: 20170127
  Transmission Date: 20170428
  Serious: Yes (Other)
  Sender: FDA-Public Use
  Company Number: PHHY2015DE084622

PATIENT
  Sex: Female

DRUGS (18)
  1. VITAMIN B-1 [Concomitant]
     Active Substance: THIAMINE
     Indication: PRODUCT USED FOR UNKNOWN INDICATION
     Dosage: UNK
     Route: 065
     Dates: start: 201412
  2. HEPARIN [Concomitant]
     Active Substance: HEPARIN SODIUM
     Indication: PRODUCT USED FOR UNKNOWN INDICATION
     Dosage: UNK UNK, QD
     Route: 058
     Dates: start: 20141130, end: 20150115
  3. IBUPROFEN. [Concomitant]
     Active Substance: IBUPROFEN
     Indication: PRODUCT USED FOR UNKNOWN INDICATION
     Dosage: 600 DF, BID
     Route: 065
     Dates: start: 20141201, end: 20150115
  4. IBUPROFEN. [Concomitant]
     Active Substance: IBUPROFEN
     Dosage: 600 DF, TID
     Route: 065
     Dates: start: 20160218, end: 20160224
  5. METYPRED//METHYLPREDNISOLONE [Concomitant]
     Active Substance: METHYLPREDNISOLONE
     Indication: PRODUCT USED FOR UNKNOWN INDICATION
     Dosage: 1000 MG, QD
     Route: 065
     Dates: start: 20110328, end: 20110330
  6. METYPRED//METHYLPREDNISOLONE [Concomitant]
     Active Substance: METHYLPREDNISOLONE
     Dosage: 1000 MG, QD
     Route: 065
     Dates: start: 20110413, end: 20110415
  7. DECORTIN H [Concomitant]
     Active Substance: PREDNISOLONE
     Dosage: 1000 MG, QD
     Route: 065
     Dates: start: 20110805, end: 20110807
  8. VITAMIN C [Concomitant]
     Active Substance: ASCORBIC ACID
     Indication: PRODUCT USED FOR UNKNOWN INDICATION
     Dosage: UNK
     Route: 065
     Dates: start: 201412
  9. DECORTIN H [Concomitant]
     Active Substance: PREDNISOLONE
     Dosage: 1000 MG, QD
     Route: 065
     Dates: start: 20110912, end: 20110914
  10. NOVALGIN [Concomitant]
     Active Substance: METAMIZOLE SODIUM
     Indication: PRODUCT USED FOR UNKNOWN INDICATION
     Dosage: 1 X 30 DROPS
     Route: 065
     Dates: start: 20160219, end: 20160219
  11. LAMUNA [Concomitant]
     Active Substance: DESOGESTREL\ETHINYL ESTRADIOL
     Indication: PRODUCT USED FOR UNKNOWN INDICATION
     Dosage: UNK
     Route: 065
     Dates: start: 20090115
  12. LYRICA [Concomitant]
     Active Substance: PREGABALIN
     Indication: PRODUCT USED FOR UNKNOWN INDICATION
     Dosage: 75 MG, QD
     Route: 065
     Dates: start: 20101112, end: 20111128
  13. DECORTIN H [Concomitant]
     Active Substance: PREDNISOLONE
     Indication: PRODUCT USED FOR UNKNOWN INDICATION
     Dosage: 1000 MG, QD
     Route: 065
     Dates: start: 20110727, end: 20110729
  14. RIZATRIPTAN. [Concomitant]
     Active Substance: RIZATRIPTAN
     Indication: PRODUCT USED FOR UNKNOWN INDICATION
     Dosage: 10 MG, QD
     Route: 065
     Dates: start: 201501
  15. GILENYA [Suspect]
     Active Substance: FINGOLIMOD HYDROCHLORIDE
     Indication: MULTIPLE SCLEROSIS
     Dosage: 0.5 MG, QD
     Route: 048
     Dates: start: 20120607
  16. CORTISON [Concomitant]
     Active Substance: CORTISONE ACETATE
     Indication: PRODUCT USED FOR UNKNOWN INDICATION
     Dosage: 1000 MG, QD
     Route: 065
     Dates: start: 20110912, end: 20110914
  17. DECORTIN H [Concomitant]
     Active Substance: PREDNISOLONE
     Dosage: 2000 MG, QD
     Route: 065
     Dates: start: 20110829, end: 20110831
  18. DECORTIN H [Concomitant]
     Active Substance: PREDNISOLONE
     Dosage: 1000 MG, QD
     Route: 065
     Dates: start: 20120101, end: 20120105

REACTIONS (2)
  - Patellofemoral pain syndrome [Unknown]
  - Synovial disorder [Recovered/Resolved]
